FAERS Safety Report 6464332-8 (Version None)
Quarter: 2009Q4

REPORT INFORMATION
  Report Type: 
  Country: None (occurrence: None)
  Receive Date: 20091201
  Receipt Date: 20091127
  Transmission Date: 20100525
  Serious: Yes (Hospitalization)
  Sender: FDA-Public Use
  Company Number: IT-WYE-G05017909

PATIENT
  Age: 44 Year
  Sex: Male

DRUGS (4)
  1. TYGACIL [Suspect]
     Indication: PERITONITIS
     Route: 042
     Dates: start: 20090916, end: 20090919
  2. TYGACIL [Suspect]
     Indication: DIVERTICULAR PERFORATION
  3. MERREM [Concomitant]
     Dosage: NOT PROVIDED
     Route: 042
  4. METRONIDAZOLE [Concomitant]
     Dosage: NOT PROVIDED
     Route: 042

REACTIONS (4)
  - MULTI-ORGAN FAILURE [None]
  - PLEURAL EFFUSION [None]
  - SEPSIS [None]
  - WHITE BLOOD CELL COUNT INCREASED [None]
